FAERS Safety Report 22321388 (Version 1)
Quarter: 2023Q2

REPORT INFORMATION
  Report Type: Spontaneous
  Country: IT (occurrence: IT)
  Receive Date: 20230515
  Receipt Date: 20230515
  Transmission Date: 20230722
  Serious: Yes (Hospitalization)
  Sender: FDA-Public Use
  Company Number: IT-VERTEX PHARMACEUTICALS-2023-006796

PATIENT

DRUGS (1)
  1. ELEXACAFTOR\IVACAFTOR\TEZACAFTOR [Suspect]
     Active Substance: ELEXACAFTOR\IVACAFTOR\TEZACAFTOR
     Indication: Cystic fibrosis
     Dosage: UNKNOWN DOSAGE REGIMEN
     Route: 048
     Dates: start: 2021

REACTIONS (7)
  - Headache [Unknown]
  - Liver function test increased [Unknown]
  - Rash [Unknown]
  - Infective pulmonary exacerbation of cystic fibrosis [Unknown]
  - Intestinal obstruction [Unknown]
  - COVID-19 [Unknown]
  - Haemoptysis [Unknown]
